FAERS Safety Report 9322669 (Version 1)
Quarter: 2013Q2

REPORT INFORMATION
  Report Type: Spontaneous
  Country: US (occurrence: US)
  Receive Date: 20130601
  Receipt Date: 20130601
  Transmission Date: 20140414
  Serious: Yes (Hospitalization, Other)
  Sender: FDA-Public Use
  Company Number: US-BAXTER-2013BAX018720

PATIENT
  Age: 59 Year
  Sex: Female

DRUGS (4)
  1. DIANEAL LOW CALCIUM [Suspect]
     Indication: PERITONEAL DIALYSIS
     Route: 033
  2. DIANEAL LOW CALCIUM [Suspect]
     Indication: PERITONEAL DIALYSIS
     Route: 033
  3. DIANEAL LOW CALCIUM (ULTRABAG) [Suspect]
     Indication: PERITONEAL DIALYSIS
     Route: 033
  4. EXTRANEAL [Suspect]
     Indication: PERITONEAL DIALYSIS
     Route: 033

REACTIONS (9)
  - Hyperhidrosis [Unknown]
  - Hypophagia [Unknown]
  - Chest pain [Unknown]
  - Blood potassium decreased [Recovered/Resolved]
  - Dyspnoea [Recovered/Resolved]
  - Nausea [Unknown]
  - Malaise [Unknown]
  - Diarrhoea [Unknown]
  - Vomiting [Unknown]
